FAERS Safety Report 26206171 (Version 1)
Quarter: 2025Q4

REPORT INFORMATION
  Report Type: Report from Study
  Country: US (occurrence: US)
  Receive Date: 20251229
  Receipt Date: 20251229
  Transmission Date: 20260117
  Serious: No
  Sender: DR REDDYS
  Company Number: US-DRL-USA-USA/2025/12/019534

PATIENT
  Age: 41 Year
  Sex: Male
  Weight: 62.7 kg

DRUGS (2)
  1. JAVYGTOR [Suspect]
     Active Substance: SAPROPTERIN DIHYDROCHLORIDE
     Indication: Phenylketonuria
     Dosage: JAVYGTOR 500 MG AND 100 MG POWDER AT A DAILY DOSE OF 1200 MG
     Route: 048
     Dates: start: 20251203
  2. JAVYGTOR [Suspect]
     Active Substance: SAPROPTERIN DIHYDROCHLORIDE
     Indication: Phenylketonuria
     Dosage: JAVYGTOR 500 MG AND 100 MG POWDER AT A DAILY DOSE OF 1200 MG
     Route: 048
     Dates: start: 20251203

REACTIONS (2)
  - Abdominal discomfort [Unknown]
  - Abdominal pain upper [Unknown]

NARRATIVE: CASE EVENT DATE: 20251209
